FAERS Safety Report 6717306-3 (Version None)
Quarter: 2010Q2

REPORT INFORMATION
  Report Type: 
  Country: None (occurrence: None)
  Receive Date: 20100510
  Receipt Date: 20100429
  Transmission Date: 20101027
  Serious: Yes (Hospitalization)
  Sender: FDA-Public Use
  Company Number: NL-MPIJNJ-2010-02434

PATIENT

DRUGS (4)
  1. VELCADE [Suspect]
     Indication: DRUG USE FOR UNKNOWN INDICATION
  2. PARACETAMOL [Concomitant]
  3. PREDNISOLON                        /00016201/ [Concomitant]
  4. PREDNISONE TAB [Concomitant]

REACTIONS (1)
  - OSTEOARTHRITIS [None]
